FAERS Safety Report 25830191 (Version 1)
Quarter: 2025Q3

REPORT INFORMATION
  Report Type: Spontaneous
  Country: EU (occurrence: EU)
  Receive Date: 20250922
  Receipt Date: 20250922
  Transmission Date: 20251021
  Serious: Yes (Hospitalization, Other)
  Sender: AUROBINDO
  Company Number: EU-AEMPS-1748047

PATIENT
  Age: 77 Year
  Sex: Male
  Weight: 87.2 kg

DRUGS (2)
  1. DOCETAXEL [Suspect]
     Active Substance: DOCETAXEL
     Indication: Prostate cancer
     Route: 042
     Dates: start: 20241220, end: 20250314
  2. NUBEQA [Suspect]
     Active Substance: DAROLUTAMIDE
     Indication: Prostate cancer
     Route: 048
     Dates: start: 20241220

REACTIONS (2)
  - Cardiac failure [Recovered/Resolved]
  - Lower respiratory tract inflammation [Recovered/Resolved]

NARRATIVE: CASE EVENT DATE: 20250327
